FAERS Safety Report 8829698 (Version 2)
Quarter: 2012Q4

REPORT INFORMATION
  Report Type: 
  Country: US (occurrence: US)
  Receive Date: 20121008
  Receipt Date: 20121009
  Transmission Date: 20130627
  Serious: Yes (Hospitalization)
  Sender: FDA-Public Use
  Company Number: US-ROCHE-1131102

PATIENT
  Sex: Male

DRUGS (5)
  1. RITUXAN [Suspect]
     Indication: CHRONIC LYMPHOCYTIC LEUKAEMIA
  2. PREDNISONE [Concomitant]
  3. CHLORAMBUCIL [Concomitant]
  4. PROAMATINE [Concomitant]
  5. TRINSICON [Concomitant]

REACTIONS (18)
  - Haemolysis [Unknown]
  - Asthenia [Unknown]
  - Pyrexia [Unknown]
  - Arthritis [Unknown]
  - Orthostatic hypotension [Unknown]
  - Abdominal pain upper [Unknown]
  - Epistaxis [Unknown]
  - Decreased appetite [Unknown]
  - Syncope [Unknown]
  - Nasal dryness [Unknown]
  - Haemoglobin decreased [Recovering/Resolving]
  - Dizziness [Unknown]
  - Nausea [Unknown]
  - Fatigue [Unknown]
  - Pickwickian syndrome [Unknown]
  - Blood glucose increased [Unknown]
  - Intraocular pressure increased [Unknown]
  - Oedema peripheral [Unknown]
